FAERS Safety Report 12813276 (Version 1)
Quarter: 2016Q4

REPORT INFORMATION
  Report Type: Report from Study
  Country: US (occurrence: US)
  Receive Date: 20161006
  Receipt Date: 20161006
  Transmission Date: 20170207
  Serious: No
  Sender: FDA-Public Use
  Company Number: US-AMGEN-USASL2016107405

PATIENT
  Age: 84 Year
  Sex: Female

DRUGS (3)
  1. PROLIA [Suspect]
     Active Substance: DENOSUMAB
     Indication: OSTEOPOROSIS
     Dosage: 60 MG, Q6MO
     Route: 065
  2. BABY ASPIRIN [Concomitant]
     Active Substance: ASPIRIN
     Dosage: UNK UNK, QD
  3. PROAIR HFA [Concomitant]
     Active Substance: ALBUTEROL SULFATE

REACTIONS (3)
  - Balance disorder [Not Recovered/Not Resolved]
  - Arthralgia [Not Recovered/Not Resolved]
  - Fall [Not Recovered/Not Resolved]

NARRATIVE: CASE EVENT DATE: 201608
